FAERS Safety Report 22012496 (Version 2)
Quarter: 2023Q1

REPORT INFORMATION
  Report Type: Spontaneous
  Country: JP (occurrence: JP)
  Receive Date: 20230220
  Receipt Date: 20230308
  Transmission Date: 20230418
  Serious: Yes (Other)
  Sender: FDA-Public Use
  Company Number: JP-JNJFOC-20230243774

PATIENT
  Age: 8 Decade
  Sex: Male

DRUGS (5)
  1. TRAMCET [Interacting]
     Active Substance: ACETAMINOPHEN\TRAMADOL
     Indication: Pain
     Dosage: DOSE UNKNOWN
     Route: 048
  2. TRAMCET [Interacting]
     Active Substance: ACETAMINOPHEN\TRAMADOL
     Dosage: DOSE UNKNOWN
     Route: 048
  3. ULTRACET [Interacting]
     Active Substance: ACETAMINOPHEN\TRAMADOL HYDROCHLORIDE
     Indication: Pain
     Dosage: DOSE UNKNOWN
     Route: 048
  4. ULTRACET [Interacting]
     Active Substance: ACETAMINOPHEN\TRAMADOL HYDROCHLORIDE
     Dosage: DOSE UNKNOWN
     Route: 048
  5. WARFARIN POTASSIUM [Interacting]
     Active Substance: WARFARIN POTASSIUM
     Indication: Product used for unknown indication
     Route: 048

REACTIONS (4)
  - International normalised ratio increased [Recovering/Resolving]
  - Drug interaction [Unknown]
  - Contraindicated product administered [Unknown]
  - Off label use [Unknown]
